FAERS Safety Report 9827758 (Version 5)
Quarter: 2014Q2

REPORT INFORMATION
  Report Type: Report from Study
  Country: ES (occurrence: ES)
  Receive Date: 20140117
  Receipt Date: 20140403
  Transmission Date: 20141212
  Serious: Yes (Hospitalization, Other)
  Sender: FDA-Public Use
  Company Number: ES-GILEAD-2013-0090427

PATIENT
  Age: 68 Year
  Sex: Female
  Weight: 92 kg

DRUGS (4)
  1. AMBRISENTAN [Suspect]
     Indication: PULMONARY ARTERIAL HYPERTENSION
     Dosage: 10 MG, QD
     Route: 048
     Dates: start: 20130731, end: 20131219
  2. TADALAFIL [Suspect]
     Indication: PULMONARY ARTERIAL HYPERTENSION
     Dosage: 40 MG, QD
     Route: 048
     Dates: start: 20131204, end: 20131219
  3. SPIRONOLACTONE [Concomitant]
     Indication: PULMONARY OEDEMA
     Dosage: 50MG PER DAY
     Route: 048
     Dates: start: 20131220
  4. CYANOCOBALAMIN [Concomitant]
     Indication: PULMONARY OEDEMA
     Dosage: 1MG WEEKLY
     Route: 030
     Dates: start: 20131217

REACTIONS (1)
  - Pulmonary oedema [Recovered/Resolved]
